FAERS Safety Report 25299594 (Version 2)
Quarter: 2025Q2

REPORT INFORMATION
  Report Type: Spontaneous
  Country: ES (occurrence: ES)
  Receive Date: 20250512
  Receipt Date: 20250523
  Transmission Date: 20250716
  Serious: Yes (Other)
  Sender: ORGANON
  Company Number: ES-ORGANON-O2505ESP000728

PATIENT
  Age: 31 Year
  Sex: Female

DRUGS (2)
  1. ETONOGESTREL [Interacting]
     Active Substance: ETONOGESTREL
     Route: 059
     Dates: start: 2023
  2. LAMOTRIGINE [Interacting]
     Active Substance: LAMOTRIGINE

REACTIONS (4)
  - Pregnancy with implant contraceptive [Not Recovered/Not Resolved]
  - Unintended pregnancy [Not Recovered/Not Resolved]
  - Drug interaction [Unknown]
  - Product use issue [Unknown]

NARRATIVE: CASE EVENT DATE: 20250227
